FAERS Safety Report 20546686 (Version 1)
Quarter: 2022Q1

REPORT INFORMATION
  Report Type: Spontaneous
  Country: US (occurrence: US)
  Receive Date: 20220303
  Receipt Date: 20220303
  Transmission Date: 20220423
  Serious: Yes (Hospitalization, Other)
  Sender: FDA-Public Use
  Company Number: US-ADVANZ PHARMA-202202000968

PATIENT

DRUGS (2)
  1. CLONIDINE [Suspect]
     Active Substance: CLONIDINE
     Dosage: UNK
  2. ARGININE [Suspect]
     Active Substance: ARGININE
     Dosage: UNK

REACTIONS (1)
  - Haematuria [Recovered/Resolved]
